FAERS Safety Report 16618630 (Version 2)
Quarter: 2019Q3

REPORT INFORMATION
  Report Type: Spontaneous
  Country: PL (occurrence: PL)
  Receive Date: 20190723
  Receipt Date: 20190910
  Transmission Date: 20191004
  Serious: Yes (Hospitalization, Other)
  Sender: FDA-Public Use
  Company Number: PL-ALLERGAN-1929685US

PATIENT
  Sex: Female

DRUGS (16)
  1. PREDNISONE. [Concomitant]
     Active Substance: PREDNISONE
     Indication: CONTROLLED OVARIAN STIMULATION
  2. CABERGOLINE. [Concomitant]
     Active Substance: CABERGOLINE
     Dosage: 0.5 MG, Q WEEK
  3. FOLIC ACID. [Concomitant]
     Active Substance: FOLIC ACID
     Indication: CONTROLLED OVARIAN STIMULATION
  4. LEVOTHYROXINE SODIUM. [Concomitant]
     Active Substance: LEVOTHYROXINE SODIUM
     Dosage: 25 ?G, QD
  5. PROGESTERONE. [Concomitant]
     Active Substance: PROGESTERONE
     Route: 067
  6. LEVOTHYROXINE SODIUM. [Concomitant]
     Active Substance: LEVOTHYROXINE SODIUM
     Dosage: 37.5 ?G, QD
  7. HUMAN SERUM ALBUMIN [Concomitant]
     Active Substance: ALBUMIN HUMAN
  8. ENOXAPARIN SODIUM. [Concomitant]
     Active Substance: ENOXAPARIN SODIUM
     Indication: CONTROLLED OVARIAN STIMULATION
  9. LEVOTHYROXINE SODIUM. [Concomitant]
     Active Substance: LEVOTHYROXINE SODIUM
     Indication: HYPOTHYROIDISM
     Dosage: 50 ?G, QD
  10. FOLLICLE STIMULATING HORMONE, RECOMBINANT [Suspect]
     Active Substance: FOLLITROPIN
     Indication: OVULATION INDUCTION
     Dosage: 1075 IU, QD
     Route: 065
  11. HUMAN CHORIONIC GONADOTROPIN [Suspect]
     Active Substance: GONADOTROPHIN, CHORIONIC
     Indication: IN VITRO FERTILISATION
     Dosage: 125 ?G
     Route: 065
  12. HETASTARCH. [Concomitant]
     Active Substance: HETASTARCH
  13. IODINE. [Concomitant]
     Active Substance: IODINE
     Dosage: 200 MG, QD
  14. ACETIC ACID. [Concomitant]
     Active Substance: ACETIC ACID
     Indication: CONTROLLED OVARIAN STIMULATION
  15. TRIPTORELIN PAMOATE - BP [Suspect]
     Active Substance: TRIPTORELIN PAMOATE
     Indication: IN VITRO FERTILISATION
     Dosage: 0.1 MG, QD
     Route: 065
  16. CABERGOLINE. [Concomitant]
     Active Substance: CABERGOLINE
     Indication: OVARIAN HYPERSTIMULATION SYNDROME
     Dosage: 0.5 MG, QD

REACTIONS (2)
  - Ovarian hyperstimulation syndrome [Recovered/Resolved]
  - Off label use [Unknown]
